FAERS Safety Report 5174074-7 (Version None)
Quarter: 2006Q4

REPORT INFORMATION
  Report Type: 
  Country: None (occurrence: None)
  Receive Date: 20061214
  Receipt Date: 20060330
  Transmission Date: 20070319
  Serious: No
  Sender: FDA-Public Use
  Company Number: US-AMGEN-US174592

PATIENT
  Sex: Female

DRUGS (11)
  1. ENBREL [Suspect]
     Indication: RHEUMATOID ARTHRITIS
     Dates: start: 20050101
  2. METHOTREXATE [Concomitant]
  3. METOPROLOL SUCCINATE [Concomitant]
  4. PREDNISONE TAB [Concomitant]
  5. NAPROSYN [Concomitant]
  6. NIACIN [Concomitant]
  7. NORVASC [Concomitant]
  8. ASPIRIN [Concomitant]
  9. VITAMIN E [Concomitant]
  10. FOLIC ACID [Concomitant]
  11. PROTONIX [Concomitant]

REACTIONS (1)
  - PRURITUS GENERALISED [None]
